FAERS Safety Report 6219229-5 (Version None)
Quarter: 2009Q2

REPORT INFORMATION
  Report Type: 
  Country: None (occurrence: None)
  Receive Date: 20090605
  Receipt Date: 20090605
  Transmission Date: 20091009
  Serious: No
  Sender: FDA-Public Use
  Company Number: None

PATIENT
  Sex: Female
  Weight: 61.2356 kg

DRUGS (1)
  1. KENALOG [Suspect]
     Indication: TENDONITIS
     Dosage: ONE INJECTION
     Dates: start: 20061101, end: 20061101

REACTIONS (12)
  - BLOOD BLISTER [None]
  - BLOOD DISORDER [None]
  - CAPILLARY DISORDER [None]
  - CONTUSION [None]
  - ERYTHEMA [None]
  - INJECTION SITE HAEMORRHAGE [None]
  - INJECTION SITE REACTION [None]
  - SKIN ATROPHY [None]
  - SKIN FRAGILITY [None]
  - SKIN HAEMORRHAGE [None]
  - SKIN INDURATION [None]
  - SUPERFICIAL VEIN PROMINENCE [None]
